FAERS Safety Report 4608420-7 (Version None)
Quarter: 2005Q1

REPORT INFORMATION
  Report Type: 
  Country: None (occurrence: None)
  Receive Date: 20050309
  Receipt Date: 20050217
  Transmission Date: 20050727
  Serious: Yes (Death, Life-Threatening)
  Sender: FDA-Public Use
  Company Number: EWC050142398

PATIENT
  Age: 47 Year
  Sex: Female

DRUGS (1)
  1. XIGRIS [Suspect]
     Indication: SEPSIS
     Dosage: 24 UG/KG/HR
     Dates: start: 20050106, end: 20050110

REACTIONS (3)
  - CARDIAC ARREST [None]
  - HAEMATOMA [None]
  - HAEMORRHAGE [None]
